FAERS Safety Report 6638156-2 (Version None)
Quarter: 2010Q1

REPORT INFORMATION
  Report Type: 
  Country: None (occurrence: None)
  Receive Date: 20100315
  Receipt Date: 20100315
  Transmission Date: 20100710
  Serious: No
  Sender: FDA-Public Use
  Company Number: None

PATIENT
  Age: 32 Year
  Sex: Male
  Weight: 99.16 kg

DRUGS (1)
  1. LAMOTRIGINE [Suspect]
     Indication: MOOD ALTERED
     Dosage: 25 MG EVERY DAY PO
     Route: 048
     Dates: start: 20100308, end: 20100311

REACTIONS (4)
  - ANXIETY [None]
  - PRURITUS [None]
  - RASH [None]
  - URTICARIA [None]
